FAERS Safety Report 9117437 (Version 4)
Quarter: 2013Q2

REPORT INFORMATION
  Report Type: Spontaneous
  Country: US (occurrence: US)
  Receive Date: 20130225
  Receipt Date: 20130509
  Transmission Date: 20140414
  Serious: Yes (Other)
  Sender: FDA-Public Use
  Company Number: US-BIOGENIDEC-2013BI015747

PATIENT
  Age: 43 Year
  Sex: Female

DRUGS (1)
  1. TYSABRI [Suspect]
     Indication: MULTIPLE SCLEROSIS
     Route: 042
     Dates: start: 20120216

REACTIONS (9)
  - Anaemia [Not Recovered/Not Resolved]
  - Depressed mood [Not Recovered/Not Resolved]
  - Metastatic malignant melanoma [Not Recovered/Not Resolved]
  - Pain [Not Recovered/Not Resolved]
  - Vocal cord paralysis [Not Recovered/Not Resolved]
  - Speech disorder [Recovered/Resolved]
  - Aphonia [Not Recovered/Not Resolved]
  - Vomiting [Recovered/Resolved]
  - Platelet count decreased [Not Recovered/Not Resolved]
